FAERS Safety Report 14007830 (Version 1)
Quarter: 2017Q3

REPORT INFORMATION
  Report Type: Spontaneous
  Country: GB (occurrence: GB)
  Receive Date: 20170925
  Receipt Date: 20170925
  Transmission Date: 20171128
  Serious: Yes (Other)
  Sender: FDA-Public Use
  Company Number: GB-TEVA-809576ACC

PATIENT
  Age: 92 Year
  Sex: Male
  Weight: 85.35 kg

DRUGS (1)
  1. LARIAM [Suspect]
     Active Substance: MEFLOQUINE HYDROCHLORIDE
     Dosage: UNKNOWN DOSAGE STRENGTH
     Route: 065
     Dates: start: 20121225, end: 20170108

REACTIONS (2)
  - Loss of consciousness [Recovered/Resolved]
  - Vomiting [Unknown]

NARRATIVE: CASE EVENT DATE: 20130108
